FAERS Safety Report 12564006 (Version 1)
Quarter: 2016Q3

REPORT INFORMATION
  Report Type: Spontaneous
  Country: US (occurrence: US)
  Receive Date: 20160718
  Receipt Date: 20160718
  Transmission Date: 20161109
  Serious: Yes (Hospitalization)
  Sender: FDA-Public Use
  Company Number: US-CIPLA-2016US04449

PATIENT

DRUGS (30)
  1. INFLUENZA VACCINE TRIVALENT [Concomitant]
     Dosage: UNK
     Route: 065
     Dates: start: 20150924
  2. KLONOPIN [Concomitant]
     Active Substance: CLONAZEPAM
     Dosage: 1 TABLET, QD
     Route: 048
  3. PRINIVIL, ZESTRIL [Concomitant]
     Dosage: 1 TABLET DAILY
     Route: 048
  4. FLUCONAZOLE. [Interacting]
     Active Substance: FLUCONAZOLE
     Indication: CANDIDA INFECTION
     Dosage: UNK
     Route: 065
  5. DESYREL [Concomitant]
     Active Substance: TRAZODONE HYDROCHLORIDE
     Indication: INSOMNIA
     Dosage: 3 TABLETS, AT NIGHT
     Route: 048
  6. ADVIL, MOTRIN [Concomitant]
     Indication: PAIN
     Dosage: 800 MG, EVERY 8 HOURS AS NEEDED
     Route: 048
  7. KENALOG [Concomitant]
     Active Substance: TRIAMCINOLONE ACETONIDE
     Dosage: APPLY 2 TIMES DAILY AS NEEDED
     Route: 061
  8. WARFARIN [Suspect]
     Active Substance: WARFARIN
     Dosage: 2.5 MG, QD AT 8 PM
     Route: 048
     Dates: start: 20150210
  9. MS CONTIN [Concomitant]
     Active Substance: MORPHINE SULFATE
     Dosage: 30 MG, BID
     Route: 048
  10. TUBERCULIN NOS [Concomitant]
     Active Substance: TUBERCULIN PURIFIED PROTEIN DERIVATIVE
     Dosage: ONCE A WEEK
     Route: 065
  11. PNEUMOCOCCAL CONJUGATE, 13 VALENT (PCV13) [Concomitant]
     Dosage: UNK
     Route: 065
     Dates: start: 20140525
  12. CETAPHIL [Concomitant]
     Active Substance: AVOBENZONE\OCTOCRYLENE\TRICLOSAN
     Indication: PAIN
     Dosage: UNK, PRN
     Route: 061
  13. DILAUDID [Concomitant]
     Active Substance: HYDROMORPHONE HYDROCHLORIDE
     Indication: PAIN
     Dosage: 8 MG, EVERY 4 HOURS
     Route: 048
  14. DEPOTESTOTERONE CYPIONATE [Concomitant]
     Dosage: 200 MG, EVERY 7 DAYS
     Route: 030
  15. BIOTIN [Concomitant]
     Active Substance: BIOTIN
     Dosage: 2 TABLETS, QD
     Route: 048
  16. FLONASE [Concomitant]
     Active Substance: FLUTICASONE PROPIONATE
     Dosage: 2 SPRAYS, AT NIGHT
     Route: 045
  17. COMBIVENT RESPIMAT [Concomitant]
     Active Substance: ALBUTEROL SULFATE\IPRATROPIUM BROMIDE
     Indication: WHEEZING
     Dosage: 20-100 MCG/ACT, INHALE 1 PUFF IN TO THE LUNGS EVERY 4 HOURS AS NEEDED, MAX OF 6 INHALATIONS DAILY
  18. COMBIVENT RESPIMAT [Concomitant]
     Active Substance: ALBUTEROL SULFATE\IPRATROPIUM BROMIDE
     Indication: DYSPNOEA
  19. PRILOSEC [Concomitant]
     Active Substance: OMEPRAZOLE MAGNESIUM
     Dosage: 1 CAPSULE, BID
     Route: 048
  20. RESTORIL [Concomitant]
     Active Substance: TEMAZEPAM
     Indication: INSOMNIA
     Dosage: AT NIGHT
     Route: 048
  21. VITAMIN C [Concomitant]
     Active Substance: ASCORBIC ACID
     Dosage: 1000 MG, BID
     Route: 048
  22. VITAMIN D [Concomitant]
     Active Substance: CHOLECALCIFEROL
     Dosage: 3000 UNITS, QD
     Route: 048
  23. COREG [Concomitant]
     Active Substance: CARVEDILOL
     Dosage: 25 MG, BID WITH MEALS
     Route: 048
  24. SYMBICORT [Concomitant]
     Active Substance: BUDESONIDE\FORMOTEROL FUMARATE DIHYDRATE
     Dosage: 160-4.5 MCG/ACT, INHALE 2 PUFF IN TO THE LUNGS, BID
  25. VIATMIN E [Concomitant]
     Dosage: 1000 UNITS QD
     Route: 048
  26. MULTIVITAMIN WITH MINERALS [Concomitant]
     Active Substance: MINERALS\VITAMINS
     Dosage: UNK, QD
     Route: 048
  27. ASPIRIN. [Concomitant]
     Active Substance: ASPIRIN
     Dosage: 81 MG, QD
     Route: 048
  28. MYCOSTATIN [Concomitant]
     Active Substance: NYSTATIN
     Dosage: 500,000 UNITS, BID FOR 3 DAYS
     Route: 048
  29. PROVENTIL HFA [Concomitant]
     Active Substance: ALBUTEROL SULFATE
     Indication: WHEEZING
     Dosage: 2 PUFFS IN TO LUNGS EVERY 6 HOURS
  30. CLARITIN [Concomitant]
     Active Substance: LORATADINE
     Dosage: 5 MG, QD
     Route: 048

REACTIONS (2)
  - Drug interaction [Unknown]
  - Haemorrhage [Unknown]
